FAERS Safety Report 20503227 (Version 1)
Quarter: 2022Q1

REPORT INFORMATION
  Report Type: Spontaneous
  Country: US (occurrence: US)
  Receive Date: 20220222
  Receipt Date: 20220222
  Transmission Date: 20220424
  Serious: No
  Sender: FDA-Public Use
  Company Number: US-GW PHARMA-202202USGW00797

PATIENT
  Sex: Male
  Weight: 55.782 kg

DRUGS (1)
  1. EPIDIOLEX [Suspect]
     Active Substance: CANNABIDIOL
     Indication: Lennox-Gastaut syndrome
     Dosage: 290 MILLIGRAM
     Route: 048
     Dates: start: 202003

REACTIONS (1)
  - Weight increased [Unknown]
